FAERS Safety Report 6842825-9 (Version None)
Quarter: 2010Q3

REPORT INFORMATION
  Report Type: 
  Country: None (occurrence: None)
  Receive Date: 20100714
  Receipt Date: 20070807
  Transmission Date: 20110219
  Serious: No
  Sender: FDA-Public Use
  Company Number: US-PFIZER INC-2007066667

PATIENT
  Sex: Male
  Weight: 100 kg

DRUGS (6)
  1. CHANTIX [Suspect]
     Indication: SMOKING CESSATION THERAPY
     Dates: start: 20070730
  2. PLAVIX [Concomitant]
  3. LOPRESSOR [Concomitant]
  4. ACETYLSALICYLIC ACID [Concomitant]
  5. PRILOSEC [Concomitant]
     Indication: DYSPEPSIA
  6. PRILOSEC [Concomitant]
     Indication: GASTROOESOPHAGEAL REFLUX DISEASE

REACTIONS (2)
  - DEPRESSED MOOD [None]
  - NAUSEA [None]
